FAERS Safety Report 25044383 (Version 1)
Quarter: 2025Q1

REPORT INFORMATION
  Report Type: Spontaneous
  Country: IQ (occurrence: IQ)
  Receive Date: 20250306
  Receipt Date: 20250306
  Transmission Date: 20250409
  Serious: Yes (Other)
  Sender: ROCHE
  Company Number: IQ-ROCHE-10000223224

PATIENT
  Age: 44 Year
  Sex: Female

DRUGS (10)
  1. RITUXIMAB [Suspect]
     Active Substance: RITUXIMAB
     Indication: Diffuse large B-cell lymphoma
     Route: 042
     Dates: start: 20240219, end: 20240403
  2. GEMCITABINE [Concomitant]
     Active Substance: GEMCITABINE
     Indication: Diffuse large B-cell lymphoma
     Route: 042
     Dates: start: 20240219, end: 20240303
  3. CISPLATIN [Concomitant]
     Active Substance: CISPLATIN
     Indication: Diffuse large B-cell lymphoma
     Route: 042
     Dates: start: 20240219, end: 20240403
  4. CYCLOPHOSPHAMIDE [Concomitant]
     Active Substance: CYCLOPHOSPHAMIDE
     Dates: start: 20200201, end: 20200701
  5. DOXORUBICIN [Concomitant]
     Active Substance: DOXORUBICIN
     Dates: start: 20200201, end: 20200701
  6. VINCRISTINE [Concomitant]
     Active Substance: VINCRISTINE
     Dates: start: 20200201, end: 20200701
  7. PREDNISONE [Concomitant]
     Active Substance: PREDNISONE
     Dates: start: 20200201, end: 20200701
  8. IFOSFAMIDE [Concomitant]
     Active Substance: IFOSFAMIDE
     Dates: start: 20230701, end: 20231101
  9. CARBOPLATIN [Concomitant]
     Active Substance: CARBOPLATIN
     Dates: start: 20230701, end: 20231101
  10. PLATINUM [Concomitant]
     Active Substance: PLATINUM
     Dates: start: 20240101, end: 20240401

REACTIONS (1)
  - Disease progression [Not Recovered/Not Resolved]

NARRATIVE: CASE EVENT DATE: 20250105
